FAERS Safety Report 8934495 (Version 1)
Quarter: 2012Q4

REPORT INFORMATION
  Report Type: 
  Country: US (occurrence: US)
  Receive Date: 20121129
  Receipt Date: 20121129
  Transmission Date: 20130627
  Serious: Yes (Other)
  Sender: FDA-Public Use
  Company Number: US-GLAXOSMITHKLINE-A0955283A

PATIENT
  Age: 50 Year
  Sex: Female

DRUGS (4)
  1. FLOVENT [Suspect]
     Indication: ASTHMA
     Dosage: 1PUFF Twice per day
     Route: 055
     Dates: start: 2008
  2. PRO-AIR [Concomitant]
  3. VITAMIN B [Concomitant]
  4. VITAMIN C [Concomitant]

REACTIONS (2)
  - Asthma [Not Recovered/Not Resolved]
  - Product quality issue [Unknown]
